FAERS Safety Report 9382947 (Version 2)
Quarter: 2013Q3

REPORT INFORMATION
  Report Type: Spontaneous
  Country: US (occurrence: US)
  Receive Date: 20130703
  Receipt Date: 20130729
  Transmission Date: 20140515
  Serious: Yes (Other)
  Sender: FDA-Public Use
  Company Number: US-B.I. PHARMACEUTICALS,INC./RIDGEFIELD-2013-BI-18624BP

PATIENT
  Age: 48 Year
  Sex: Male
  Weight: 102.06 kg

DRUGS (7)
  1. PRADAXA [Suspect]
     Indication: ATRIAL FIBRILLATION
     Dosage: 300 MG
     Route: 048
     Dates: start: 201212
  2. PRADAXA [Suspect]
     Indication: CEREBROVASCULAR ACCIDENT PROPHYLAXIS
  3. METOPROLOL TARTRATE [Concomitant]
     Dosage: 200 MG
     Route: 048
  4. SIMVASTATIN [Concomitant]
     Dosage: 20 MG
     Route: 048
  5. PROPAFENONE ER [Concomitant]
     Dosage: 440 MG
     Route: 048
  6. LISINOPRIL [Concomitant]
     Dosage: 20 MG
     Route: 048
  7. SPIRONOLACTONE [Concomitant]
     Dosage: 25 MG
     Route: 048

REACTIONS (1)
  - Cerebrovascular accident [Recovered/Resolved]
